FAERS Safety Report 20984203 (Version 1)
Quarter: 2022Q2

REPORT INFORMATION
  Report Type: Spontaneous
  Country: TW (occurrence: TW)
  Receive Date: 20220621
  Receipt Date: 20220621
  Transmission Date: 20220721
  Serious: No
  Sender: FDA-Public Use
  Company Number: TW-CSTONE PHARMACEUTICALS (SUZHOU) CO., LTD.-2022TW00717

PATIENT
  Sex: Male

DRUGS (1)
  1. AYVAKIT [Suspect]
     Active Substance: AVAPRITINIB
     Indication: Product used for unknown indication
     Route: 048
     Dates: start: 20220524

REACTIONS (1)
  - COVID-19 [Unknown]
